FAERS Safety Report 7632357-2 (Version None)
Quarter: 2011Q3

REPORT INFORMATION
  Report Type: 
  Country: None (occurrence: None)
  Receive Date: 20110725
  Receipt Date: 20100813
  Transmission Date: 20111222
  Serious: Yes (Other)
  Sender: FDA-Public Use
  Company Number: US-BRISTOL-MYERS SQUIBB COMPANY-15239585

PATIENT
  Age: 76 Year
  Sex: Female

DRUGS (1)
  1. WARFARIN SODIUM [Suspect]
     Route: 048

REACTIONS (2)
  - ECCHYMOSIS [None]
  - INTERNATIONAL NORMALISED RATIO INCREASED [None]
